FAERS Safety Report 9224544 (Version 1)
Quarter: 2013Q1

REPORT INFORMATION
  Report Type: Spontaneous
  Country: US (occurrence: None)
  Receive Date: 20120914
  Receipt Date: 20120914
  Transmission Date: 20140127
  Serious: Yes (Other)
  Sender: FDA-Public Use
  Company Number: JPI-P-019773

PATIENT
  Age: 56 Year
  Sex: Female

DRUGS (1)
  1. XYREM [Suspect]
     Indication: HYPERSOMNIA
     Dosage: 6 GM (3 GM 2 IN 1 D)
     Route: 048
     Dates: start: 20100122

REACTIONS (1)
  - Arthritis [None]
